FAERS Safety Report 24066680 (Version 5)
Quarter: 2024Q3

REPORT INFORMATION
  Report Type: Report from Study
  Country: CA (occurrence: CA)
  Receive Date: 20240709
  Receipt Date: 20240910
  Transmission Date: 20241017
  Serious: Yes (Other)
  Sender: ROCHE
  Company Number: CA-ROCHE-3533484

PATIENT
  Sex: Female

DRUGS (1)
  1. OCREVUS [Suspect]
     Active Substance: OCRELIZUMAB
     Indication: Relapsing-remitting multiple sclerosis
     Dosage: 300 MG AT DAY 0 AND 14, THEN 600 MG EVERY 6 MONTH
     Route: 042
     Dates: start: 20220923

REACTIONS (15)
  - Osteomyelitis [Not Recovered/Not Resolved]
  - Scab [Unknown]
  - Ulcer [Recovering/Resolving]
  - Joint swelling [Recovering/Resolving]
  - Ligament sprain [Unknown]
  - Skeletal injury [Unknown]
  - Erythema [Unknown]
  - Infected skin ulcer [Not Recovered/Not Resolved]
  - Skin ulcer [Unknown]
  - Ischaemic skin ulcer [Unknown]
  - Humerus fracture [Unknown]
  - Infection [Unknown]
  - Movement disorder [Unknown]
  - Cardiovascular disorder [Unknown]
  - Osteonecrosis [Unknown]
